FAERS Safety Report 4541888-3 (Version None)
Quarter: 2004Q4

REPORT INFORMATION
  Report Type: 
  Country: None (occurrence: None)
  Receive Date: 20041227
  Receipt Date: 20041215
  Transmission Date: 20050328
  Serious: Yes (Hospitalization)
  Sender: FDA-Public Use
  Company Number: 2004AP03268

PATIENT
  Age: 80 Year
  Sex: Male

DRUGS (3)
  1. CASODEX [Suspect]
     Indication: PROSTATE CANCER
     Dosage: 80 MG DAILY PO
     Route: 048
     Dates: start: 20030801, end: 20040610
  2. ZOLADEX [Suspect]
     Indication: PROSTATE CANCER
     Dates: start: 20030801
  3. AVISHOT [Concomitant]

REACTIONS (2)
  - HEPATITIS [None]
  - RHABDOMYOLYSIS [None]
